FAERS Safety Report 4580374-1 (Version None)
Quarter: 2005Q1

REPORT INFORMATION
  Report Type: 
  Country: None (occurrence: None)
  Receive Date: 20050214
  Receipt Date: 20040108
  Transmission Date: 20050727
  Serious: No
  Sender: FDA-Public Use
  Company Number: US-GLAXOSMITHKLINE-A0492004A

PATIENT
  Age: 52 Year
  Sex: Female

DRUGS (4)
  1. LAMICTAL [Suspect]
     Route: 048
     Dates: start: 20031001
  2. EFFEXOR XR [Concomitant]
  3. ENALAPRIL MALEATE [Concomitant]
  4. HYDROCHLOROTHIAZIDE [Concomitant]

REACTIONS (4)
  - PHARYNGOLARYNGEAL PAIN [None]
  - PRURITUS [None]
  - STOMATITIS [None]
  - SWELLING FACE [None]
